FAERS Safety Report 17712506 (Version 2)
Quarter: 2021Q1

REPORT INFORMATION
  Report Type: Spontaneous
  Country: US (occurrence: US)
  Receive Date: 20200427
  Receipt Date: 20210226
  Transmission Date: 20210419
  Serious: Yes (Hospitalization)
  Sender: FDA-Public Use
  Company Number: US-PFIZER INC-2020166191

PATIENT
  Age: 82 Year
  Sex: Male
  Weight: 86.36 kg

DRUGS (3)
  1. TORSEMIDE. [Concomitant]
     Active Substance: TORSEMIDE
     Indication: AMYLOIDOSIS
     Dosage: 20 MG, 2X/DAY
  2. VYNDAMAX [Suspect]
     Active Substance: TAFAMIDIS
     Indication: AMYLOIDOSIS
     Dosage: 61 MG, 1X/DAY
     Route: 048
     Dates: end: 20200408
  3. SPIRONOLACTONE. [Concomitant]
     Active Substance: SPIRONOLACTONE
     Indication: AMYLOIDOSIS
     Dosage: 25 MG, 1X/DAY

REACTIONS (2)
  - Off label use [Unknown]
  - Laryngeal cancer [Unknown]

NARRATIVE: CASE EVENT DATE: 20200320
